FAERS Safety Report 8865955 (Version 1)
Quarter: 2012Q4

REPORT INFORMATION
  Report Type: 
  Country: US (occurrence: US)
  Receive Date: 20121025
  Receipt Date: 20121025
  Transmission Date: 20130627
  Serious: No
  Sender: FDA-Public Use
  Company Number: US-ABBOTT-12P-163-0954770-00

PATIENT
  Sex: Female
  Weight: 61.29 kg

DRUGS (4)
  1. LUPRON DEPOT 3.75 MG [Suspect]
     Indication: PREMENSTRUAL SYNDROME
     Dates: start: 2000
  2. BLOOD PRESSURE MEDICATION [Concomitant]
     Indication: HYPERTENSION
  3. CHOLESTEROL PILL [Concomitant]
     Indication: BLOOD CHOLESTEROL INCREASED
  4. THYROID MEDICATION [Concomitant]
     Indication: HYPOTHYROIDISM

REACTIONS (2)
  - Off label use [Unknown]
  - Hot flush [Not Recovered/Not Resolved]
